FAERS Safety Report 21914414 (Version 1)
Quarter: 2023Q1

REPORT INFORMATION
  Report Type: Report from Study
  Country: DE (occurrence: DE)
  Receive Date: 20230126
  Receipt Date: 20230126
  Transmission Date: 20230418
  Serious: Yes (Hospitalization)
  Sender: FDA-Public Use
  Company Number: DE-ABBVIE-4282087

PATIENT
  Age: 69 Year
  Sex: Male
  Weight: 125 kg

DRUGS (9)
  1. SKYRIZI [Suspect]
     Active Substance: RISANKIZUMAB-RZAA
     Indication: Psoriasis
     Route: 058
     Dates: start: 20200326, end: 20210624
  2. URAPIDIL [Concomitant]
     Active Substance: URAPIDIL
     Indication: Product used for unknown indication
     Dosage: FORM STRENGTH: 60 UNKNOWN
  3. ALLOPURINOL [Concomitant]
     Active Substance: ALLOPURINOL
     Indication: Product used for unknown indication
     Dosage: FORM STRENGTH: 100 UNKNOWN
  4. AMLODIPINE BESYLATE [Concomitant]
     Active Substance: AMLODIPINE BESYLATE
     Indication: Product used for unknown indication
     Dosage: FORM STRENGTH: 6 UNKNOWN
  5. SPIRIVA [Concomitant]
     Active Substance: TIOTROPIUM BROMIDE MONOHYDRATE
     Indication: Product used for unknown indication
     Dosage: FORM STRENGTH: 18 UNKNOWN
  6. FUROSEMIDE [Concomitant]
     Active Substance: FUROSEMIDE
     Indication: Product used for unknown indication
     Dosage: FORM STRENGTH: 40 UNKNOWN
  7. BISOPROLOL [Concomitant]
     Active Substance: BISOPROLOL
     Indication: Product used for unknown indication
     Dosage: 0.5 IN DAY?FORM STRENGTH: 5 UNKNOWN
  8. TAMSULOSIN [Concomitant]
     Active Substance: TAMSULOSIN
     Indication: Product used for unknown indication
     Dosage: FORM STRENGTH: 0.4 UNKNOWN
  9. SODIUM CHLORIDE [Concomitant]
     Active Substance: SODIUM CHLORIDE
     Indication: Product used for unknown indication

REACTIONS (22)
  - Acute kidney injury [Recovering/Resolving]
  - General physical health deterioration [Unknown]
  - Dermatitis [Unknown]
  - Chronic obstructive pulmonary disease [Unknown]
  - Obesity [Unknown]
  - Tongue dry [Unknown]
  - Hypertension [Unknown]
  - Metabolic acidosis [Recovering/Resolving]
  - Chronic kidney disease [Recovering/Resolving]
  - Pollakiuria [Unknown]
  - Jaundice [Unknown]
  - Oedema peripheral [Unknown]
  - Hyperkalaemia [Unknown]
  - Photophobia [Unknown]
  - Prostatomegaly [Unknown]
  - Prostatic mass [Unknown]
  - Urine output increased [Unknown]
  - Blood potassium increased [Unknown]
  - Abdominal wall disorder [Unknown]
  - Breath sounds abnormal [Unknown]
  - Respiratory tract congestion [Unknown]
  - Urinary tract disorder [Unknown]

NARRATIVE: CASE EVENT DATE: 20210101
